FAERS Safety Report 7771242-2 (Version None)
Quarter: 2011Q3

REPORT INFORMATION
  Report Type: 
  Country: None (occurrence: None)
  Receive Date: 20110922
  Receipt Date: 20110503
  Transmission Date: 20111222
  Serious: No
  Sender: FDA-Public Use
  Company Number: US-ASTRAZENECA-2011SE26384

PATIENT
  Sex: Female

DRUGS (4)
  1. SEROQUEL [Suspect]
     Indication: BIPOLAR DISORDER
     Route: 048
  2. SYNTHROID [Concomitant]
  3. CELEBREX [Concomitant]
  4. CYMBALTA [Concomitant]

REACTIONS (1)
  - DRUG SCREEN POSITIVE [None]
